FAERS Safety Report 13649336 (Version 1)
Quarter: 2017Q2

REPORT INFORMATION
  Report Type: Spontaneous
  Country: FR (occurrence: FR)
  Receive Date: 20170613
  Receipt Date: 20170613
  Transmission Date: 20170830
  Serious: Yes (Hospitalization)
  Sender: FDA-Public Use
  Company Number: PHHY2017FR082231

PATIENT
  Age: 42 Year
  Sex: Female

DRUGS (3)
  1. HYDROCORTISONE. [Concomitant]
     Active Substance: HYDROCORTISONE
     Indication: ADRENAL INSUFFICIENCY
     Route: 048
  2. OMEPRAZOLE. [Suspect]
     Active Substance: OMEPRAZOLE
     Indication: GASTRIC ULCER
     Route: 048
  3. LEVOFLOXACIN SANDOZ [Suspect]
     Active Substance: LEVOFLOXACIN
     Indication: BRONCHITIS
     Dosage: 1 DF, BID
     Route: 048
     Dates: start: 20170421, end: 20170427

REACTIONS (6)
  - Tremor [Recovered/Resolved]
  - Hypoglycaemia [Recovered/Resolved]
  - Suicidal ideation [Recovered/Resolved]
  - Hypotension [Recovered/Resolved]
  - Insomnia [Recovered/Resolved]
  - Vision blurred [Recovered/Resolved]

NARRATIVE: CASE EVENT DATE: 20170422
